FAERS Safety Report 13387945 (Version 1)
Quarter: 2017Q1

REPORT INFORMATION
  Report Type: Spontaneous
  Country: ES (occurrence: ES)
  Receive Date: 20170330
  Receipt Date: 20170330
  Transmission Date: 20170429
  Serious: Yes (Other)
  Sender: FDA-Public Use
  Company Number: ES-GILEAD-2017-0263911

PATIENT
  Age: 33 Year
  Sex: Male

DRUGS (2)
  1. CAFFEINE W/ERGOTAMINE TARTRATE/PARACETAMO L [Interacting]
     Active Substance: ACETAMINOPHEN\CAFFEINE\ERGOTAMINE TARTRATE
     Indication: HEADACHE
     Dosage: 100 MG/1 MG/300 MG, QD
     Route: 065
  2. STRIBILD [Suspect]
     Active Substance: COBICISTAT\ELVITEGRAVIR\EMTRICITABINE\TENOFOVIR DISOPROXIL FUMARATE
     Indication: HIV INFECTION
     Dosage: 1 DF, UNK
     Route: 065
     Dates: start: 201411

REACTIONS (3)
  - Peripheral ischaemia [Recovering/Resolving]
  - Drug interaction [Recovering/Resolving]
  - Ergot poisoning [Recovering/Resolving]
